FAERS Safety Report 8924815 (Version 1)
Quarter: 2012Q4

REPORT INFORMATION
  Report Type: 
  Country: AU (occurrence: AU)
  Receive Date: 20121126
  Receipt Date: 20121126
  Transmission Date: 20130627
  Serious: Yes (Other)
  Sender: FDA-Public Use
  Company Number: AU-ROCHE-GNE317493

PATIENT
  Age: 36 Year
  Sex: Female

DRUGS (5)
  1. XOLAIR [Suspect]
     Indication: ASTHMA
     Route: 065
  2. PREDNISOLONE [Concomitant]
     Indication: ASTHMA
     Dosage: 50 mg, qd
     Route: 065
  3. PREDNISOLONE [Concomitant]
     Dosage: 20 mg, qd
     Route: 065
  4. PREDNISOLONE [Concomitant]
     Dosage: 75 mg, qd
     Route: 065
  5. PREDNISOLONE [Concomitant]
     Dosage: 100 mg, qd
     Route: 065

REACTIONS (3)
  - Asthma [Recovering/Resolving]
  - Eosinophilia [Recovering/Resolving]
  - Lung infiltration [Recovering/Resolving]
